FAERS Safety Report 6042028-4 (Version None)
Quarter: 2009Q1

REPORT INFORMATION
  Report Type: 
  Country: None (occurrence: None)
  Receive Date: 20090116
  Receipt Date: 20090105
  Transmission Date: 20090719
  Serious: Yes (Death)
  Sender: FDA-Public Use
  Company Number: US-MERCK-0901USA00977

PATIENT
  Age: 47 Year
  Sex: Female

DRUGS (8)
  1. ZETIA [Suspect]
     Route: 048
  2. LEVOTHYROXINE SODIUM [Suspect]
     Route: 048
  3. HYDROXYZINE HYDROCHLORIDE [Suspect]
     Route: 048
  4. TOPIRAMATE [Suspect]
     Route: 048
  5. GABAPENTIN [Suspect]
     Route: 048
  6. TRAZODONE HYDROCHLORIDE [Suspect]
     Route: 048
  7. MIRTAZAPINE [Suspect]
     Route: 048
  8. QUETIAPINE FUMARATE [Suspect]
     Route: 048

REACTIONS (2)
  - COMPLETED SUICIDE [None]
  - OVERDOSE [None]
